FAERS Safety Report 9262144 (Version 2)
Quarter: 2013Q2

REPORT INFORMATION
  Report Type: Spontaneous
  Country: US (occurrence: US)
  Receive Date: 20130430
  Receipt Date: 20130617
  Transmission Date: 20140414
  Serious: Yes (Other)
  Sender: FDA-Public Use
  Company Number: US-009507513-1304USA016817

PATIENT
  Age: 51 Year
  Sex: Male

DRUGS (2)
  1. ZOCOR [Suspect]
     Indication: BLOOD CHOLESTEROL INCREASED
     Dosage: 20 MG, QD
     Route: 048
     Dates: start: 20130410, end: 20130425
  2. PROZAC [Concomitant]
     Dosage: UNK

REACTIONS (8)
  - Loss of consciousness [Unknown]
  - Convulsion [Unknown]
  - Road traffic accident [Unknown]
  - General physical health deterioration [Unknown]
  - Pain [Unknown]
  - Asthenia [Unknown]
  - Fatigue [Unknown]
  - Malaise [Unknown]
